FAERS Safety Report 9490432 (Version 1)
Quarter: 2013Q3

REPORT INFORMATION
  Report Type: Report from Study
  Country: GB (occurrence: GB)
  Receive Date: 20130830
  Receipt Date: 20130830
  Transmission Date: 20140515
  Serious: Yes (Hospitalization, Other)
  Sender: FDA-Public Use
  Company Number: GB-ROCHE-1267543

PATIENT
  Age: 90 Year
  Sex: Female

DRUGS (5)
  1. RANIBIZUMAB [Suspect]
     Indication: PRODUCT USED FOR UNKNOWN INDICATION
     Route: 050
     Dates: start: 20120913
  2. RANIBIZUMAB [Suspect]
     Route: 050
     Dates: start: 20121108
  3. FUROSEMIDE [Concomitant]
  4. SPIRONOLACTONE [Concomitant]
  5. PARACETAMOL [Concomitant]

REACTIONS (2)
  - Femoral neck fracture [Unknown]
  - Fall [Unknown]
